FAERS Safety Report 17896463 (Version 1)
Quarter: 2020Q2

REPORT INFORMATION
  Report Type: Spontaneous
  Country: US (occurrence: US)
  Receive Date: 20200615
  Receipt Date: 20200615
  Transmission Date: 20200714
  Serious: No
  Sender: FDA-Public Use
  Company Number: US-TEVA-2020-US-1518508

PATIENT
  Sex: Female

DRUGS (2)
  1. PROBIOTIC [Suspect]
     Active Substance: PROBIOTICS NOS
     Route: 065
  2. DOXYCYCLINE. [Suspect]
     Active Substance: DOXYCYCLINE
     Indication: UTERINE INFECTION
     Route: 065
     Dates: start: 2017, end: 2017

REACTIONS (6)
  - Feeling abnormal [Recovered/Resolved]
  - Feelings of worthlessness [Recovered/Resolved]
  - Depersonalisation/derealisation disorder [Recovered/Resolved]
  - Emotional poverty [Recovered/Resolved]
  - Fear of death [Recovered/Resolved]
  - Treatment noncompliance [Unknown]

NARRATIVE: CASE EVENT DATE: 2017
